FAERS Safety Report 12092164 (Version 1)
Quarter: 2016Q1

REPORT INFORMATION
  Report Type: Spontaneous
  Country: US (occurrence: US)
  Receive Date: 20160219
  Receipt Date: 20160219
  Transmission Date: 20160526
  Serious: Yes (Other)
  Sender: FDA-Public Use
  Company Number: US-BRISTOL-MYERS SQUIBB COMPANY-BMS-2007-000034

PATIENT
  Sex: Male
  Weight: 1.73 kg

DRUGS (15)
  1. DOXORUBICIN [Suspect]
     Active Substance: DOXORUBICIN
     Indication: PRODUCT USED FOR UNKNOWN INDICATION
     Dosage: 40 MG/M2, UNK
     Route: 064
  2. VINCRISTINE [Suspect]
     Active Substance: VINCRISTINE
     Indication: PRODUCT USED FOR UNKNOWN INDICATION
     Dosage: 15 MG/M2, UNK
     Route: 064
  3. LEUCOVORIN. [Suspect]
     Active Substance: LEUCOVORIN
     Indication: PRODUCT USED FOR UNKNOWN INDICATION
     Dosage: 192 MG/M2, UNK
     Route: 064
  4. FILGRASTIM [Suspect]
     Active Substance: FILGRASTIM
     Indication: PRODUCT USED FOR UNKNOWN INDICATION
     Dosage: 480 ?G, 3 TIMES/WK
     Route: 064
  5. CYCLOPHOSPHAMIDE. [Suspect]
     Active Substance: CYCLOPHOSPHAMIDE
     Indication: PRODUCT USED FOR UNKNOWN INDICATION
     Dosage: 800 MG/M2, UNK
     Route: 064
  6. DARBEPOETIN ALFA [Suspect]
     Active Substance: DARBEPOETIN ALFA
     Indication: PRODUCT USED FOR UNKNOWN INDICATION
     Dosage: 100 ?G, QWK
     Route: 064
  7. ETOPOSIDE. [Suspect]
     Active Substance: ETOPOSIDE
     Indication: PRODUCT USED FOR UNKNOWN INDICATION
     Dosage: 60 MG/M2, QD
     Route: 064
  8. IFOSFAMIDE. [Suspect]
     Active Substance: IFOSFAMIDE
     Indication: PRODUCT USED FOR UNKNOWN INDICATION
     Dosage: 1500 MG/M2, UNK
     Route: 064
  9. STARASID [Suspect]
     Active Substance: CYTARABINE OCFOSFATE
     Indication: PRODUCT USED FOR UNKNOWN INDICATION
     Dosage: 70 MG, UNK
     Route: 064
  10. PROMETHAZINE [Suspect]
     Active Substance: PROMETHAZINE\PROMETHAZINE HYDROCHLORIDE
     Indication: PRODUCT USED FOR UNKNOWN INDICATION
     Dosage: 25 MG, Q6H
     Route: 064
  11. MESNA. [Suspect]
     Active Substance: MESNA
     Indication: PRODUCT USED FOR UNKNOWN INDICATION
     Dosage: 360 MG/M2, UNK
     Route: 064
  12. GRANULOCYTE CSF [Suspect]
     Active Substance: GRANULOCYTE COLONY-STIMULATING FACTOR NOS
     Indication: PRODUCT USED FOR UNKNOWN INDICATION
     Dosage: 5 UNK, QD
     Route: 064
  13. ALLOPURINOL. [Suspect]
     Active Substance: ALLOPURINOL
     Indication: PRODUCT USED FOR UNKNOWN INDICATION
     Dosage: 300 MG, BID
     Route: 064
  14. ONDANSETRON [Suspect]
     Active Substance: ONDANSETRON
     Indication: PRODUCT USED FOR UNKNOWN INDICATION
     Dosage: 8 MG, BID
     Route: 064
  15. DEXAMETHASONE. [Suspect]
     Active Substance: DEXAMETHASONE
     Indication: PRODUCT USED FOR UNKNOWN INDICATION
     Dosage: 8 MG, BID
     Route: 064

REACTIONS (6)
  - Sepsis [None]
  - Respiratory distress [Unknown]
  - Pneumonia [None]
  - Premature baby [Unknown]
  - Motor developmental delay [None]
  - Foetal exposure during pregnancy [Recovered/Resolved]
